FAERS Safety Report 17065876 (Version 1)
Quarter: 2019Q4

REPORT INFORMATION
  Report Type: Spontaneous
  Country: US (occurrence: US)
  Receive Date: 20191122
  Receipt Date: 20191122
  Transmission Date: 20200122
  Serious: Yes (Other)
  Sender: FDA-Public Use
  Company Number: US-ASTRAZENECA-2019SF65146

PATIENT
  Age: 672 Month
  Sex: Female
  Weight: 106.6 kg

DRUGS (1)
  1. BYETTA [Suspect]
     Active Substance: EXENATIDE
     Indication: TYPE 2 DIABETES MELLITUS
     Route: 058
     Dates: end: 20180515

REACTIONS (7)
  - Chest pain [Recovering/Resolving]
  - Limb discomfort [Recovering/Resolving]
  - Fall [Recovered/Resolved]
  - Dyspnoea [Recovering/Resolving]
  - Contusion [Recovered/Resolved]
  - Cardiac disorder [Recovering/Resolving]
  - Arthritis [Not Recovered/Not Resolved]

NARRATIVE: CASE EVENT DATE: 201805
